FAERS Safety Report 10611296 (Version 1)
Quarter: 2014Q4

REPORT INFORMATION
  Report Type: Spontaneous
  Country: DE (occurrence: None)
  Receive Date: 20141124
  Receipt Date: 20141124
  Transmission Date: 20150529
  Serious: Yes (Congenital Anomaly, Other)
  Sender: FDA-Public Use
  Company Number: DE-ZYDUS-005583

PATIENT
  Age: 1 Day
  Sex: Male
  Weight: 2.09 kg

DRUGS (4)
  1. DIVALPROEX [Suspect]
     Active Substance: DIVALPROEX SODIUM
     Route: 064
  2. TOPIRAMATE (TOPIRAMATE) [Suspect]
     Active Substance: TOPIRAMATE
     Route: 064
  3. FRISIUM [Suspect]
     Active Substance: CLOBAZAM
     Route: 064
  4. LEVETIRACETAM (LEVETIRACETAM) [Suspect]
     Active Substance: LEVETIRACETAM
     Route: 064

REACTIONS (14)
  - Bradycardia neonatal [None]
  - Foetal growth restriction [None]
  - Retrognathia [None]
  - Low set ears [None]
  - Bradypnoea [None]
  - Neonatal respiratory distress syndrome [None]
  - Atrial septal defect [None]
  - Prominent epicanthal folds [None]
  - Premature baby [None]
  - Small for dates baby [None]
  - Maternal drugs affecting foetus [None]
  - Floppy infant [None]
  - Metabolic acidosis [None]
  - Caesarean section [None]

NARRATIVE: CASE EVENT DATE: 20131011
